FAERS Safety Report 7375453-X (Version None)
Quarter: 2011Q1

REPORT INFORMATION
  Report Type: 
  Country: None (occurrence: None)
  Receive Date: 20110325
  Receipt Date: 20110317
  Transmission Date: 20110831
  Serious: No
  Sender: FDA-Public Use
  Company Number: US-BAXTER-2010BH003666

PATIENT
  Age: 52 Year
  Sex: Male
  Weight: 72 kg

DRUGS (35)
  1. ACETAMINOPHEN [Concomitant]
     Indication: PRODUCT USED FOR UNKNOWN INDICATION
     Route: 048
  2. ASPIRIN [Concomitant]
     Indication: PRODUCT USED FOR UNKNOWN INDICATION
     Route: 048
  3. RAMIPRIL [Concomitant]
     Indication: PRODUCT USED FOR UNKNOWN INDICATION
     Route: 065
  4. NICOTINE [Concomitant]
     Indication: PRODUCT USED FOR UNKNOWN INDICATION
     Route: 061
  5. LIDOCAINE [Concomitant]
     Indication: LOCAL ANAESTHESIA
     Route: 058
     Dates: start: 20080131, end: 20080131
  6. HEPARIN SODIUM INJECTION [Suspect]
     Indication: ACUTE MYOCARDIAL INFARCTION
     Route: 040
     Dates: start: 20080131, end: 20080131
  7. HEPARIN SODIUM INJECTION [Suspect]
     Route: 042
     Dates: start: 20080131, end: 20080131
  8. HEPARIN SODIUM INJECTION [Suspect]
     Route: 065
     Dates: start: 20080201, end: 20080201
  9. HEPARIN SODIUM 10,000 UNITS IN SODIUM CHLORIDE 0.45% [Suspect]
     Indication: ACUTE MYOCARDIAL INFARCTION
     Route: 041
     Dates: start: 20080131, end: 20080131
  10. ZOSYN [Suspect]
     Indication: PYREXIA
     Route: 042
     Dates: start: 20080203, end: 20080204
  11. MORPHINE [Concomitant]
     Indication: PRODUCT USED FOR UNKNOWN INDICATION
     Route: 065
  12. MORPHINE SULFATE [Concomitant]
     Indication: CHEST PAIN
     Route: 042
     Dates: start: 20080130
  13. MAGNESIUM SULFATE [Concomitant]
     Indication: PRODUCT USED FOR UNKNOWN INDICATION
     Route: 065
  14. METOPROLOL TARTRATE [Concomitant]
     Indication: PRODUCT USED FOR UNKNOWN INDICATION
     Route: 065
  15. VERSED [Concomitant]
     Indication: SEDATION
     Route: 042
     Dates: start: 20080131, end: 20080131
  16. ACETAMINOPHEN AND OXYCODONE HCL [Concomitant]
     Indication: PRODUCT USED FOR UNKNOWN INDICATION
     Route: 048
  17. CLOPIDOGREL [Concomitant]
     Indication: PRODUCT USED FOR UNKNOWN INDICATION
     Route: 065
  18. HEPARIN SODIUM INJECTION [Suspect]
     Indication: ANGIOPLASTY
     Route: 040
     Dates: start: 20080131, end: 20080131
  19. PANTOPRAZOLE SODIUM [Concomitant]
     Indication: PRODUCT USED FOR UNKNOWN INDICATION
     Route: 065
  20. FENTANYL [Concomitant]
     Indication: SEDATION
     Route: 042
     Dates: start: 20080131
  21. HEPARIN SODIUM INJECTION [Suspect]
     Route: 042
     Dates: start: 20080131, end: 20080131
  22. HEPARIN SODIUM INJECTION [Suspect]
     Route: 065
     Dates: start: 20080201, end: 20080201
  23. DIPHENHYDRAMINE [Concomitant]
     Indication: PRURITUS
     Route: 042
     Dates: start: 20080131
  24. NITROGLYCERIN [Concomitant]
     Indication: CHEST PAIN
     Route: 060
     Dates: start: 20080130
  25. NITROGLYCERIN [Concomitant]
     Route: 061
     Dates: start: 20080130
  26. ASPIRIN [Concomitant]
     Indication: CHEST PAIN
     Route: 048
     Dates: start: 20080130
  27. HEPARIN SODIUM INJECTION [Suspect]
     Route: 042
     Dates: start: 20080131, end: 20080131
  28. VANCOMYCIN HCL [Suspect]
     Indication: PYREXIA
     Route: 042
     Dates: start: 20080203, end: 20080205
  29. ZOSYN [Suspect]
     Indication: LEUKOCYTOSIS
     Route: 042
     Dates: start: 20080203, end: 20080204
  30. HEPARIN SODIUM INJECTION [Suspect]
     Indication: STENT PLACEMENT
     Route: 040
     Dates: start: 20080131, end: 20080131
  31. HEPARIN SODIUM INJECTION [Suspect]
     Route: 065
     Dates: start: 20080201, end: 20080201
  32. VANCOMYCIN HCL [Suspect]
     Indication: LEUKOCYTOSIS
     Route: 042
     Dates: start: 20080203, end: 20080205
  33. ATORVASTATIN CALCIUM [Concomitant]
     Indication: PRODUCT USED FOR UNKNOWN INDICATION
     Route: 065
  34. POTASSIUM CHLORIDE [Concomitant]
     Indication: PRODUCT USED FOR UNKNOWN INDICATION
     Route: 065
  35. KETOROLAC [Concomitant]
     Indication: PRODUCT USED FOR UNKNOWN INDICATION
     Route: 065
     Dates: start: 20080130

REACTIONS (5)
  - RASH GENERALISED [None]
  - LEUKOCYTOSIS [None]
  - RASH PRURITIC [None]
  - PYREXIA [None]
  - RASH ERYTHEMATOUS [None]
